FAERS Safety Report 5707153-3 (Version None)
Quarter: 2008Q2

REPORT INFORMATION
  Report Type: 
  Country: None (occurrence: None)
  Receive Date: 20080414
  Receipt Date: 20080414
  Transmission Date: 20081010
  Serious: Yes (Other)
  Sender: FDA-Public Use
  Company Number: None

PATIENT
  Age: 6 Year
  Sex: Male
  Weight: 28.123 kg

DRUGS (2)
  1. SINGULAIR [Suspect]
     Indication: SEASONAL ALLERGY
     Dosage: 1 PILL ONCE A DAY PO
     Route: 048
     Dates: start: 20051101, end: 20060630
  2. SINGULAIR [Suspect]
     Indication: SEASONAL ALLERGY
     Dosage: 1 PILL ONCE A DAY PO
     Route: 048
     Dates: start: 20060921, end: 20080329

REACTIONS (17)
  - ABDOMINAL PAIN UPPER [None]
  - ABNORMAL BEHAVIOUR [None]
  - AGGRESSION [None]
  - ANGER [None]
  - CONFUSIONAL STATE [None]
  - DEPRESSION [None]
  - EMOTIONAL DISORDER [None]
  - ENURESIS [None]
  - HEADACHE [None]
  - IMPULSIVE BEHAVIOUR [None]
  - INSOMNIA [None]
  - NERVOUS SYSTEM DISORDER [None]
  - NIGHTMARE [None]
  - PAIN IN EXTREMITY [None]
  - SINUS DISORDER [None]
  - SINUSITIS [None]
  - THINKING ABNORMAL [None]
